FAERS Safety Report 24174979 (Version 5)
Quarter: 2025Q4

REPORT INFORMATION
  Report Type: Spontaneous
  Country: JP (occurrence: JP)
  Receive Date: 20240805
  Receipt Date: 20251008
  Transmission Date: 20260118
  Serious: Yes (Other)
  Sender: DAIICHI
  Company Number: JP-DSJP-DSJ-2024-138244

PATIENT
  Age: 68 Year
  Sex: Male
  Weight: 57.5 kg

DRUGS (34)
  1. RIFADIN [Interacting]
     Active Substance: RIFAMPIN
     Indication: Mycobacterium avium complex infection
     Dosage: 450 MG, QD (AFTER BREAKFAST)
     Route: 048
     Dates: end: 20230528
  2. RIFADIN [Interacting]
     Active Substance: RIFAMPIN
     Dosage: 450 MG, QD (AFTER BREAKFAST)
     Route: 048
     Dates: start: 20230606, end: 20230608
  3. RIFADIN [Interacting]
     Active Substance: RIFAMPIN
     Dosage: 450 MG, QD (AFTER BREAKFAST)
     Route: 048
     Dates: start: 20230613
  4. EDOXABAN TOSYLATE [Interacting]
     Active Substance: EDOXABAN TOSYLATE
     Indication: Atrial fibrillation
     Dosage: 60 MG, QD (AFTER BREAKFAST)
     Route: 048
     Dates: end: 20230526
  5. EDOXABAN TOSYLATE [Interacting]
     Active Substance: EDOXABAN TOSYLATE
     Dosage: 60 MG, QD (AFTER BREAKFAST)
     Route: 048
     Dates: start: 20230606, end: 20230608
  6. EDOXABAN TOSYLATE [Interacting]
     Active Substance: EDOXABAN TOSYLATE
     Dosage: 30 MG, QD (AFTER BREAKFAST)
     Route: 048
     Dates: start: 20230620
  7. CLARITHROMYCIN [Interacting]
     Active Substance: CLARITHROMYCIN
     Indication: Mycobacterium avium complex infection
     Dosage: 800 MG, QD (AFTER BREAKFAST)
     Route: 048
     Dates: end: 20230528
  8. CLARITHROMYCIN [Interacting]
     Active Substance: CLARITHROMYCIN
     Dosage: 800 MG, QD (AFTER BREAKFAST)
     Route: 048
     Dates: start: 20230606, end: 20230608
  9. CLARITHROMYCIN [Interacting]
     Active Substance: CLARITHROMYCIN
     Dosage: 800 MG, QD (AFTER BREAKFAST)
     Route: 048
     Dates: start: 20230613
  10. ETHAMBUTOL HYDROCHLORIDE [Concomitant]
     Active Substance: ETHAMBUTOL HYDROCHLORIDE
     Indication: Mycobacterium avium complex infection
     Dosage: 750 MG, QD
     Route: 048
     Dates: end: 20230528
  11. ETHAMBUTOL HYDROCHLORIDE [Concomitant]
     Active Substance: ETHAMBUTOL HYDROCHLORIDE
     Dosage: 750 MG, QD
     Route: 048
     Dates: start: 20230606, end: 20230608
  12. ETHAMBUTOL HYDROCHLORIDE [Concomitant]
     Active Substance: ETHAMBUTOL HYDROCHLORIDE
     Dosage: 750 MG, QD
     Route: 048
     Dates: start: 20230613
  13. BISOPROLOL FUMARATE [Concomitant]
     Active Substance: BISOPROLOL FUMARATE
     Indication: Product used for unknown indication
     Dosage: 2.5 MG, QD (AFTER BREAKFAST)
     Route: 048
     Dates: end: 20230528
  14. BISOPROLOL FUMARATE [Concomitant]
     Active Substance: BISOPROLOL FUMARATE
     Dosage: 2.5 MG, QD (AFTER BREAKFAST)
     Route: 048
     Dates: start: 20230606, end: 20230608
  15. BISOPROLOL FUMARATE [Concomitant]
     Active Substance: BISOPROLOL FUMARATE
     Dosage: 1.875 MG, QD (AFTER BREAKFAST)
     Route: 048
     Dates: start: 20230613
  16. DIOVAN [Concomitant]
     Active Substance: VALSARTAN
     Indication: Product used for unknown indication
     Dosage: 80 MG, QD (AFTER BREAKFAST)
     Route: 048
     Dates: end: 20230528
  17. DIOVAN [Concomitant]
     Active Substance: VALSARTAN
     Dosage: 80 MG, QD (AFTER BREAKFAST)
     Route: 048
     Dates: start: 20230606, end: 20230608
  18. DIOVAN [Concomitant]
     Active Substance: VALSARTAN
     Dosage: 80 MG, QD (AFTER BREAKFAST)
     Route: 048
     Dates: start: 20230613
  19. LIPIDIL [Concomitant]
     Active Substance: FENOFIBRATE
     Indication: Product used for unknown indication
     Dosage: 160 MG, QD (AFTER BREAKFAST)
     Route: 048
     Dates: end: 20230528
  20. LIPIDIL [Concomitant]
     Active Substance: FENOFIBRATE
     Dosage: 160 MG, QD (AFTER BREAKFAST)
     Route: 048
     Dates: start: 20230606, end: 20230608
  21. LIPIDIL [Concomitant]
     Active Substance: FENOFIBRATE
     Dosage: 160 MG, QD (AFTER BREAKFAST)
     Route: 048
     Dates: start: 20230613
  22. ADALAT CC [Concomitant]
     Active Substance: NIFEDIPINE
     Indication: Product used for unknown indication
     Dosage: 40 MG, QD (AFTER BREAKFAST)
     Route: 048
     Dates: end: 20230528
  23. ADALAT CC [Concomitant]
     Active Substance: NIFEDIPINE
     Dosage: 40 MG, QD (AFTER BREAKFAST)
     Route: 048
     Dates: start: 20230606, end: 20230608
  24. ADALAT CC [Concomitant]
     Active Substance: NIFEDIPINE
     Dosage: 40 MG, QD (AFTER BREAKFAST)
     Route: 048
     Dates: start: 20230613
  25. TEPRENONE [Concomitant]
     Active Substance: TEPRENONE
     Indication: Product used for unknown indication
     Dosage: 0.5 DOSAGE FORM, QD (AFTER BREAKFAST)
     Route: 048
     Dates: end: 20230528
  26. TEPRENONE [Concomitant]
     Active Substance: TEPRENONE
     Dosage: 0.5 DOSAGE FORM, QD (AFTER BREAKFAST)
     Route: 048
     Dates: start: 20230606, end: 20230608
  27. TEPRENONE [Concomitant]
     Active Substance: TEPRENONE
     Dosage: 0.5 DOSAGE FORM, QD (AFTER BREAKFAST)
     Route: 048
     Dates: start: 20230613
  28. LANSOPRAZOLE [Concomitant]
     Active Substance: LANSOPRAZOLE
     Indication: Product used for unknown indication
     Dosage: 15 MG/DAY
     Route: 048
  29. LANSOPRAZOLE [Concomitant]
     Active Substance: LANSOPRAZOLE
     Dosage: 15 MG/DAY
     Route: 048
  30. PANCRELIPASE [Concomitant]
     Active Substance: PANCRELIPASE
     Indication: Product used for unknown indication
     Dosage: 450 MG/DAY
     Route: 048
  31. PANCRELIPASE [Concomitant]
     Active Substance: PANCRELIPASE
     Dosage: 450 MG/DAY
     Route: 048
  32. ACOTIAMIDE HYDROCHLORIDE [Concomitant]
     Active Substance: ACOTIAMIDE HYDROCHLORIDE
     Indication: Product used for unknown indication
     Dosage: 300 MG/DAY
     Route: 048
  33. ACOTIAMIDE HYDROCHLORIDE [Concomitant]
     Active Substance: ACOTIAMIDE HYDROCHLORIDE
     Dosage: 300 MG/DAY
     Route: 048
  34. HALCION [Concomitant]
     Active Substance: TRIAZOLAM
     Indication: Product used for unknown indication
     Dosage: 0.25 MG, QD (BEFORE SLEEP)
     Route: 048

REACTIONS (6)
  - Acute kidney injury [Recovered/Resolved]
  - Drug interaction [Unknown]
  - Drug interaction [Unknown]
  - Haemorrhage subcutaneous [Recovered/Resolved]
  - Cholangitis acute [Recovered/Resolved]
  - Mechanical ileus [Recovered/Resolved]

NARRATIVE: CASE EVENT DATE: 20230607
